FAERS Safety Report 4441726-3 (Version None)
Quarter: 2004Q3

REPORT INFORMATION
  Report Type: 
  Country: None (occurrence: None)
  Receive Date: 20040907
  Receipt Date: 20040826
  Transmission Date: 20050211
  Serious: Yes (Hospitalization)
  Sender: FDA-Public Use
  Company Number: US-JNJFOC-20040809413

PATIENT
  Sex: Female
  Weight: 87.09 kg

DRUGS (3)
  1. INFLIXIMAB [Suspect]
     Route: 042
  2. INFLIXIMAB [Suspect]
     Indication: CROHN'S DISEASE
     Route: 042
  3. IMURAN [Suspect]
     Indication: DRUG USE FOR UNKNOWN INDICATION

REACTIONS (6)
  - HYSTERECTOMY [None]
  - IMMUNOSUPPRESSION [None]
  - INFUSION RELATED REACTION [None]
  - LYMPHANGIOMA [None]
  - NAUSEA [None]
  - VULVAL CELLULITIS [None]
